FAERS Safety Report 14134150 (Version 2)
Quarter: 2017Q4

REPORT INFORMATION
  Report Type: Report from Study
  Country: AU (occurrence: AU)
  Receive Date: 20171027
  Receipt Date: 20171108
  Transmission Date: 20180321
  Serious: No
  Sender: FDA-Public Use
  Company Number: PHHY2016AU176133

PATIENT
  Age: 40 Year
  Sex: Female

DRUGS (1)
  1. GILENYA [Suspect]
     Active Substance: FINGOLIMOD HYDROCHLORIDE
     Indication: MULTIPLE SCLEROSIS
     Dosage: 0.5 MG, QD
     Route: 048
     Dates: start: 20160331

REACTIONS (4)
  - Muscular weakness [Unknown]
  - Impetigo [Unknown]
  - Vision blurred [Unknown]
  - Influenza [Unknown]

NARRATIVE: CASE EVENT DATE: 20160920
